FAERS Safety Report 7093870-2 (Version None)
Quarter: 2010Q4

REPORT INFORMATION
  Report Type: 
  Country: None (occurrence: None)
  Receive Date: 20101110
  Receipt Date: 20101104
  Transmission Date: 20110411
  Serious: Yes (Hospitalization)
  Sender: FDA-Public Use
  Company Number: B0682832A

PATIENT
  Sex: Female

DRUGS (7)
  1. ZEFFIX [Suspect]
     Indication: HEPATITIS B
     Dosage: 25MG PER DAY
     Route: 048
  2. CELLCEPT [Suspect]
     Indication: PRODUCT USED FOR UNKNOWN INDICATION
     Dosage: 500MG TWICE PER DAY
     Route: 048
     Dates: start: 19970101
  3. VIREAD [Suspect]
     Indication: PRODUCT USED FOR UNKNOWN INDICATION
     Dosage: 10MG TWO TIMES PER WEEK
     Route: 048
     Dates: start: 20100501
  4. PROTELOS [Suspect]
     Indication: PRODUCT USED FOR UNKNOWN INDICATION
     Dosage: 1UNIT PER DAY
     Route: 048
  5. IDEOS [Suspect]
     Indication: PRODUCT USED FOR UNKNOWN INDICATION
     Dosage: 2UNIT PER DAY
     Route: 048
  6. ORACILLINE [Suspect]
     Indication: PRODUCT USED FOR UNKNOWN INDICATION
     Dosage: 2U6 PER DAY
     Route: 048
  7. ALLOPURINOL [Suspect]
     Indication: PRODUCT USED FOR UNKNOWN INDICATION
     Dosage: 100MG PER DAY
     Route: 048

REACTIONS (5)
  - ANAEMIA MACROCYTIC [None]
  - COLITIS ULCERATIVE [None]
  - COLON INJURY [None]
  - DIARRHOEA [None]
  - IATROGENIC INJURY [None]
